FAERS Safety Report 4578294-1 (Version None)
Quarter: 2005Q1

REPORT INFORMATION
  Report Type: 
  Country: None (occurrence: None)
  Receive Date: 20050209
  Receipt Date: 20050124
  Transmission Date: 20050727
  Serious: Yes (Other)
  Sender: FDA-Public Use
  Company Number: US_0501111585

PATIENT
  Sex: Male

DRUGS (1)
  1. ZYPREXA [Suspect]
     Indication: DEPRESSION
     Dates: start: 20030421

REACTIONS (6)
  - CARDIAC MURMUR [None]
  - DIABETES MELLITUS [None]
  - HYPERTENSION [None]
  - KETOSIS [None]
  - PANCREATITIS [None]
  - WEIGHT INCREASED [None]
